FAERS Safety Report 7808941-X (Version None)
Quarter: 2011Q4

REPORT INFORMATION
  Report Type: 
  Country: None (occurrence: None)
  Receive Date: 20111012
  Receipt Date: 20111005
  Transmission Date: 20120403
  Serious: Yes (Hospitalization, Disabling, Other)
  Sender: FDA-Public Use
  Company Number: US-BRISTOL-MYERS SQUIBB COMPANY-16017527

PATIENT
  Age: 53 Year
  Sex: Male

DRUGS (13)
  1. ABILIFY [Concomitant]
  2. SIMVASTATIN [Concomitant]
  3. MAGNESIUM OXIDE [Concomitant]
     Dosage: 1 DF: 3 TABS ONCE DAILY
  4. DEXAMETHASONE [Concomitant]
     Dosage: BEFORE CHEMO 1.5DAYS AFTER CHEMO TABS
     Route: 048
  5. GABAPENTIN [Concomitant]
     Dosage: TABS
  6. KYTRIL [Concomitant]
     Indication: NAUSEA
     Dosage: TABS BID.
     Route: 048
  7. POTASSIUM CHLORIDE [Concomitant]
     Dosage: 1 DF: 1 TAB DAILY
  8. REMERON [Concomitant]
     Dosage: 1 DF: 2 TABS AT BED TIME
  9. YERVOY [Suspect]
     Indication: METASTATIC MALIGNANT MELANOMA
     Dosage: 3 DOSES .18NOV10 306.3MG.312.9MG 09DEC10.314.7MG 29DEC10
     Route: 042
     Dates: start: 20101118
  10. LOVENOX [Concomitant]
     Dosage: 150MG/ML SOLN ALSO TAKEN INJ 140MG.
     Route: 058
  11. SENNA [Concomitant]
     Dosage: 187 MG TABS 1 AS NEEDED FOR BM DAILY
  12. CLONAZEPAM [Concomitant]
     Dosage: 3MG AT BED TIME.
  13. PROTONIX [Concomitant]

REACTIONS (4)
  - VISUAL ACUITY REDUCED [None]
  - OPTIC NEURITIS [None]
  - MENINGITIS [None]
  - GASTROENTERITIS [None]
